FAERS Safety Report 17236987 (Version 3)
Quarter: 2020Q2

REPORT INFORMATION
  Report Type: Spontaneous
  Country: US (occurrence: US)
  Receive Date: 20200106
  Receipt Date: 20200511
  Transmission Date: 20200713
  Serious: Yes (Hospitalization, Other)
  Sender: FDA-Public Use
  Company Number: US-UPSHER-SMITH LABORATORIES, LLC-2019USL00903

PATIENT
  Age: 3 Year
  Sex: Male
  Weight: 15.42 kg

DRUGS (5)
  1. VIGADRONE [Suspect]
     Active Substance: VIGABATRIN
     Dosage: 375 MG, 2X/DAY
     Route: 048
     Dates: start: 20191204, end: 20191206
  2. VIGADRONE [Suspect]
     Active Substance: VIGABATRIN
     Dosage: 375 MG, 2X/DAY
     Route: 048
     Dates: start: 20191222, end: 20191225
  3. VIGADRONE [Suspect]
     Active Substance: VIGABATRIN
     Dosage: 750 MG, 2X/DAY
     Route: 048
     Dates: start: 20191207, end: 20191209
  4. VIGADRONE [Suspect]
     Active Substance: VIGABATRIN
     Dosage: 1250 MG, 2X/DAY
     Route: 048
     Dates: start: 20191210, end: 20191218
  5. VIGADRONE [Suspect]
     Active Substance: VIGABATRIN
     Dosage: 750 MG, 2X/DAY
     Route: 048
     Dates: start: 20191219, end: 20191221

REACTIONS (4)
  - Drug ineffective [Recovered/Resolved]
  - Seizure [Recovered/Resolved]
  - Somnolence [Recovered/Resolved]
  - Staring [Recovered/Resolved]

NARRATIVE: CASE EVENT DATE: 201912
